FAERS Safety Report 14078849 (Version 2)
Quarter: 2017Q4

REPORT INFORMATION
  Report Type: Report from Study
  Country: NL (occurrence: NL)
  Receive Date: 20171012
  Receipt Date: 20171012
  Transmission Date: 20180321
  Serious: Yes (Hospitalization, Disabling)
  Sender: FDA-Public Use
  Company Number: NL-SHIRE-2017BLT005525

PATIENT
  Age: 45 Year
  Sex: Male
  Weight: 77.9 kg

DRUGS (2)
  1. COAGULATION FACTOR VIII (PORCINE, RECOMBINANT) [Suspect]
     Active Substance: ANTIHEMOPHILIC FACTOR PORCINE, B-DOMAIN TRUNCATED RECOMBINANT
     Indication: HAEMOPHILIA A WITH ANTI FACTOR VIII
     Dosage: RIGHT ARM; 24 VIALS USED
     Route: 042
     Dates: start: 20170514, end: 20170514
  2. NOVOSEVEN [Concomitant]
     Active Substance: COAGULATION FACTOR VIIA RECOMBINANT HUMAN
     Indication: FACTOR VIII DEFICIENCY
     Dosage: 7 MG, UNK
     Route: 042
     Dates: start: 20170515

REACTIONS (2)
  - Anti factor VIII antibody increased [Unknown]
  - Haemarthrosis [Recovered/Resolved]

NARRATIVE: CASE EVENT DATE: 20170516
